FAERS Safety Report 16141077 (Version 2)
Quarter: 2019Q2

REPORT INFORMATION
  Report Type: Spontaneous
  Country: US (occurrence: US)
  Receive Date: 20190401
  Receipt Date: 20190410
  Transmission Date: 20190711
  Serious: No
  Sender: FDA-Public Use
  Company Number: US-PFIZER INC-2019129217

PATIENT
  Age: 57 Year
  Sex: Male

DRUGS (1)
  1. XELJANZ XR [Suspect]
     Active Substance: TOFACITINIB CITRATE
     Dosage: 11 MG, UNK
     Dates: start: 20190302

REACTIONS (10)
  - Sinusitis [Unknown]
  - Insomnia [Unknown]
  - Depressed mood [Unknown]
  - Pain [Unknown]
  - Disturbance in attention [Unknown]
  - Somnolence [Unknown]
  - Viral infection [Unknown]
  - Swelling [Unknown]
  - Loss of personal independence in daily activities [Unknown]
  - Diarrhoea [Unknown]
